FAERS Safety Report 5218755-5 (Version None)
Quarter: 2007Q1

REPORT INFORMATION
  Report Type: 
  Country: None (occurrence: None)
  Receive Date: 20070123
  Receipt Date: 20070112
  Transmission Date: 20070707
  Serious: Yes (Hospitalization)
  Sender: FDA-Public Use
  Company Number: 2007AL000264

PATIENT
  Age: 74 Year
  Sex: Female

DRUGS (2)
  1. AMANTADINE HCL [Suspect]
     Indication: PARKINSON'S DISEASE
     Dosage: 200 MG;QD;PO
     Route: 048
  2. DROXIDOPA [Concomitant]

REACTIONS (12)
  - DEHYDRATION [None]
  - DRUG TOXICITY [None]
  - DYSSTASIA [None]
  - HEARING IMPAIRED [None]
  - MYOCLONUS [None]
  - PYREXIA [None]
  - REFLEXES ABNORMAL [None]
  - RENAL IMPAIRMENT [None]
  - SPEECH DISORDER [None]
  - VISUAL DISTURBANCE [None]
  - VOMITING [None]
  - WHEELCHAIR USER [None]
